FAERS Safety Report 8009777-X (Version None)
Quarter: 2011Q4

REPORT INFORMATION
  Report Type: 
  Country: None (occurrence: None)
  Receive Date: 20111228
  Receipt Date: 20111219
  Transmission Date: 20120403
  Serious: Yes (Death, Other)
  Sender: FDA-Public Use
  Company Number: KR-ACCORD-011688

PATIENT
  Age: 25 Year
  Sex: Male

DRUGS (3)
  1. PACLITAXEL [Suspect]
     Indication: GERM CELL CANCER
     Dosage: PATIENT RECEIVED 3 CYCLES
     Dates: start: 20100801, end: 20101001
  2. CISPLATIN [Suspect]
     Indication: GERM CELL CANCER
     Dosage: PATIENT RECEIVED 3 CYCLES
     Dates: start: 20100801, end: 20101001
  3. IFOSFAMIDE [Suspect]
     Indication: GERM CELL CANCER
     Dosage: PATIENT RECEIVED 3 CYCLES
     Dates: start: 20100801, end: 20101001

REACTIONS (3)
  - ACUTE MEGAKARYOCYTIC LEUKAEMIA [None]
  - OFF LABEL USE [None]
  - SEPTIC SHOCK [None]
